FAERS Safety Report 7423116-4 (Version None)
Quarter: 2011Q2

REPORT INFORMATION
  Report Type: 
  Country: None (occurrence: None)
  Receive Date: 20110419
  Receipt Date: 20110413
  Transmission Date: 20111010
  Serious: Yes (Death, Other)
  Sender: FDA-Public Use
  Company Number: DE-SANOFI-AVENTIS-2011SA022555

PATIENT

DRUGS (2)
  1. DOCETAXEL [Suspect]
     Indication: HEAD AND NECK CANCER
     Route: 041
  2. CETUXIMAB [Suspect]
     Indication: HEAD AND NECK CANCER
     Route: 041

REACTIONS (4)
  - DISEASE PROGRESSION [None]
  - DISTURBANCE IN ATTENTION [None]
  - HYPERCALCAEMIA [None]
  - HEAD AND NECK CANCER [None]
